FAERS Safety Report 9117042 (Version 1)
Quarter: 2013Q1

REPORT INFORMATION
  Report Type: Spontaneous
  Country: US (occurrence: US)
  Receive Date: 20130208
  Receipt Date: 20130208
  Transmission Date: 20140127
  Serious: Yes (Hospitalization)
  Sender: FDA-Public Use
  Company Number: US-JNJFOC-20120905506

PATIENT
  Sex: Female

DRUGS (6)
  1. REMICADE [Suspect]
     Indication: RHEUMATOID ARTHRITIS
     Route: 042
     Dates: start: 20111115, end: 20120828
  2. CELEBREX [Concomitant]
     Indication: RHEUMATOID ARTHRITIS
     Dosage: DOSE: 200 (UNITS UNSPECIFIED)
     Route: 065
  3. GABAPENTIN [Concomitant]
     Route: 065
  4. LISINOPRIL [Concomitant]
     Indication: HYPERTENSION
     Dosage: DATE: MAY-2012 (NOT REPORTED IF IT WAS THE START DATE OR STOP DATE)
     Route: 065
  5. METHOTREXATE [Concomitant]
     Indication: RHEUMATOID ARTHRITIS
     Route: 065
  6. METOPROLOL [Concomitant]
     Indication: HYPERTENSION
     Route: 065

REACTIONS (1)
  - Deep vein thrombosis [Recovering/Resolving]
